FAERS Safety Report 5939657-2 (Version None)
Quarter: 2008Q4

REPORT INFORMATION
  Report Type: 
  Country: None (occurrence: None)
  Receive Date: 20081030
  Receipt Date: 20081030
  Transmission Date: 20090506
  Serious: Yes (Hospitalization)
  Sender: FDA-Public Use
  Company Number: None

PATIENT
  Age: 59 Year
  Sex: Male
  Weight: 30.391 kg

DRUGS (2)
  1. SULFAMETHOXAZOLE AND TRIMETHOPRIM [Suspect]
     Indication: PROPHYLAXIS
     Dosage: 800 MG/160 MG  TWICE DAILY PO
     Route: 048
  2. . [Concomitant]

REACTIONS (2)
  - EPIDERMAL NECROSIS [None]
  - ERYTHEMA MULTIFORME [None]
